FAERS Safety Report 6194845-8 (Version None)
Quarter: 2009Q2

REPORT INFORMATION
  Report Type: 
  Country: None (occurrence: None)
  Receive Date: 20090515
  Receipt Date: 20090515
  Transmission Date: 20091009
  Serious: No
  Sender: FDA-Public Use
  Company Number: None

PATIENT
  Age: 48 Year
  Sex: Female

DRUGS (1)
  1. ROCEPHIN [Suspect]
     Dosage: 1 GM DAILY IV
     Route: 042
     Dates: start: 20090513, end: 20090514

REACTIONS (2)
  - DRUG HYPERSENSITIVITY [None]
  - SELF-MEDICATION [None]
